FAERS Safety Report 6747141-1 (Version None)
Quarter: 2010Q2

REPORT INFORMATION
  Report Type: 
  Country: None (occurrence: None)
  Receive Date: 20100528
  Receipt Date: 20100521
  Transmission Date: 20101027
  Serious: Yes (Other)
  Sender: FDA-Public Use
  Company Number: IT-BAXTER-2010BH013950

PATIENT
  Age: 63 Year
  Sex: Male

DRUGS (7)
  1. HOLOXAN BAXTER [Suspect]
     Indication: COLON CANCER STAGE III
     Route: 042
     Dates: start: 20091021, end: 20100315
  2. FLUOROURACIL [Suspect]
     Indication: COLON CANCER STAGE III
     Route: 040
     Dates: start: 20091021, end: 20100317
  3. LEVOFOLENE [Suspect]
     Indication: COLON CANCER STAGE III
     Route: 042
     Dates: start: 20091021, end: 20100317
  4. FELODIPINE [Concomitant]
     Indication: MYOCARDIAL INFARCTION
     Route: 048
     Dates: start: 19970101, end: 20100407
  5. ASCRIPTIN [Concomitant]
     Indication: MYOCARDIAL INFARCTION
     Route: 048
     Dates: start: 19970101, end: 20100407
  6. SINVACOR [Concomitant]
     Indication: MYOCARDIAL INFARCTION
     Route: 048
     Dates: start: 19970101, end: 20100407
  7. METFORAL [Concomitant]
     Indication: DIABETES MELLITUS
     Route: 048
     Dates: start: 20060101, end: 20100414

REACTIONS (6)
  - ANGIOEDEMA [None]
  - CONTUSION [None]
  - FALL [None]
  - HEAD INJURY [None]
  - SKIN LACERATION [None]
  - SYNCOPE [None]
